FAERS Safety Report 4479155-9 (Version None)
Quarter: 2004Q3

REPORT INFORMATION
  Report Type: 
  Country: None (occurrence: None)
  Receive Date: 20040923
  Receipt Date: 20040706
  Transmission Date: 20050211
  Serious: Yes (Hospitalization)
  Sender: FDA-Public Use
  Company Number: 207648

PATIENT
  Age: 61 Year
  Sex: Female

DRUGS (1)
  1. AVASTIN [Suspect]
     Indication: COLORECTAL CANCER
     Dosage: INTRAVENOUS
     Route: 042

REACTIONS (1)
  - DIVERTICULITIS INTESTINAL HAEMORRHAGIC [None]
